FAERS Safety Report 6538531-0 (Version None)
Quarter: 2010Q1

REPORT INFORMATION
  Report Type: 
  Country: None (occurrence: None)
  Receive Date: 20100113
  Receipt Date: 20100113
  Transmission Date: 20100710
  Serious: Yes (Hospitalization)
  Sender: FDA-Public Use
  Company Number: None

PATIENT
  Sex: Male
  Weight: 15.5 kg

DRUGS (4)
  1. CYCLOPHOSPHAMIDE [Suspect]
     Dosage: 3480 MG
  2. G-CSF (FILGRASTIM, AMGEN) [Suspect]
     Dosage: 1056 MCG
  3. MESNA [Suspect]
     Dosage: 2088 MG
  4. THIOTEPA [Suspect]
     Dosage: 522 MG

REACTIONS (13)
  - CANDIDIASIS [None]
  - CLOSTRIDIAL INFECTION [None]
  - ENTEROCOCCAL INFECTION [None]
  - EPSTEIN-BARR VIRUS INFECTION [None]
  - HEPATIC ARTERY FLOW DECREASED [None]
  - HEPATOMEGALY [None]
  - HERPES SIMPLEX [None]
  - HYPOTENSION [None]
  - PERIPORTAL OEDEMA [None]
  - RESPIRATORY DISTRESS [None]
  - RETROGRADE PORTAL VEIN FLOW [None]
  - VENOOCCLUSIVE DISEASE [None]
  - VENOOCCLUSIVE LIVER DISEASE [None]
